FAERS Safety Report 12568229 (Version 3)
Quarter: 2017Q2

REPORT INFORMATION
  Report Type: Spontaneous
  Country: US (occurrence: US)
  Receive Date: 20160718
  Receipt Date: 20170615
  Transmission Date: 20170830
  Serious: Yes (Death, Hospitalization, Other)
  Sender: FDA-Public Use
  Company Number: US-SAOL THERAPEUTICS-2016SAO00180

PATIENT
  Sex: Male

DRUGS (1)
  1. COMPOUNDED BACLOFEN [Suspect]
     Active Substance: BACLOFEN
     Indication: MUSCLE SPASTICITY
     Dosage: 394.6 ?G, \DAY
     Route: 037

REACTIONS (6)
  - Toxicity to various agents [Fatal]
  - Pain [None]
  - Spinal operation [Unknown]
  - Respiratory failure [Fatal]
  - Pulmonary thrombosis [None]
  - Procedural complication [None]
